FAERS Safety Report 8035956-1 (Version None)
Quarter: 2012Q1

REPORT INFORMATION
  Report Type: 
  Country: None (occurrence: None)
  Receive Date: 20120106
  Receipt Date: 20120103
  Transmission Date: 20120608
  Serious: Yes (Other)
  Sender: FDA-Public Use
  Company Number: 2010SP004901

PATIENT
  Age: 23 Year
  Sex: Female
  Weight: 99.7913 kg

DRUGS (8)
  1. NUVARING [Suspect]
     Indication: VAGINAL INFECTION
     Dates: start: 20080811
  2. NUVARING [Suspect]
     Indication: MENSTRUATION IRREGULAR
     Dates: start: 20080811
  3. NUVARING [Suspect]
     Indication: DYSMENORRHOEA
     Dates: start: 20080811
  4. NUVARING [Suspect]
     Indication: MIGRAINE
     Dates: start: 20080811
  5. NUVARING [Suspect]
     Indication: VAGINAL INFECTION
     Dates: start: 20050706, end: 20080401
  6. NUVARING [Suspect]
     Indication: MENSTRUATION IRREGULAR
     Dates: start: 20050706, end: 20080401
  7. NUVARING [Suspect]
     Indication: DYSMENORRHOEA
     Dates: start: 20050706, end: 20080401
  8. NUVARING [Suspect]
     Indication: MIGRAINE
     Dates: start: 20050706, end: 20080401

REACTIONS (20)
  - IMPAIRED WORK ABILITY [None]
  - BONE PAIN [None]
  - PULMONARY EMBOLISM [None]
  - VARICOSE VEIN [None]
  - CONTUSION [None]
  - INTERVERTEBRAL DISC PROTRUSION [None]
  - INTERVERTEBRAL DISC DEGENERATION [None]
  - MYALGIA [None]
  - DEEP VEIN THROMBOSIS [None]
  - WRIST SURGERY [None]
  - POST PROCEDURAL COMPLICATION [None]
  - MENISCUS LESION [None]
  - MIGRAINE [None]
  - PAIN [None]
  - MEDIAL TIBIAL STRESS SYNDROME [None]
  - WEIGHT INCREASED [None]
  - FUNGAL INFECTION [None]
  - CONDITION AGGRAVATED [None]
  - BREAST MASS [None]
  - PAIN IN EXTREMITY [None]
